FAERS Safety Report 11744512 (Version 1)
Quarter: 2015Q4

REPORT INFORMATION
  Report Type: Spontaneous
  Country: US (occurrence: US)
  Receive Date: 20151116
  Receipt Date: 20151116
  Transmission Date: 20160304
  Serious: No
  Sender: FDA-Public Use
  Company Number: US-CELGENEUS-USA-2015106182

PATIENT
  Sex: Female

DRUGS (4)
  1. THALIDOMIDE [Suspect]
     Active Substance: THALIDOMIDE
     Route: 048
     Dates: start: 201211
  2. THALIDOMIDE [Suspect]
     Active Substance: THALIDOMIDE
     Route: 048
     Dates: start: 201502
  3. THALIDOMIDE [Suspect]
     Active Substance: THALIDOMIDE
     Indication: APHTHOUS ULCER
     Route: 048
     Dates: start: 201112
  4. THALIDOMIDE [Suspect]
     Active Substance: THALIDOMIDE
     Route: 048
     Dates: start: 201507

REACTIONS (2)
  - Pain in extremity [Recovering/Resolving]
  - Feeling abnormal [Recovering/Resolving]
